FAERS Safety Report 22063228 (Version 1)
Quarter: 2023Q1

REPORT INFORMATION
  Report Type: Spontaneous
  Country: US (occurrence: US)
  Receive Date: 20230306
  Receipt Date: 20230306
  Transmission Date: 20230417
  Serious: No
  Sender: FDA-Public Use
  Company Number: US-VIIV HEALTHCARE LIMITED-US2023AMR031057

PATIENT
  Age: 52 Year
  Sex: Female

DRUGS (2)
  1. RILPIVIRINE [Suspect]
     Active Substance: RILPIVIRINE
     Indication: HIV infection
     Dosage: UNK UNK, Z (600-900 MG EVERY 2 MONTHS)
     Route: 065
     Dates: start: 20220701
  2. CABOTEGRAVIR [Suspect]
     Active Substance: CABOTEGRAVIR
     Indication: HIV infection
     Dosage: UNK UNK, Z (600-900 MG EVERY 2 MONTHS)
     Route: 065
     Dates: start: 20220701

REACTIONS (1)
  - Injection site nodule [Not Recovered/Not Resolved]
